APPROVED DRUG PRODUCT: OLANZAPINE
Active Ingredient: OLANZAPINE
Strength: 15MG
Dosage Form/Route: TABLET, ORALLY DISINTEGRATING;ORAL
Application: A206892 | Product #003 | TE Code: AB
Applicant: HISUN PHARMACEUTICAL (HANGZHOU) CO LTD
Approved: Dec 31, 2020 | RLD: No | RS: No | Type: RX